FAERS Safety Report 20034515 (Version 1)
Quarter: 2021Q4

REPORT INFORMATION
  Report Type: Report from Study
  Country: US (occurrence: US)
  Receive Date: 20211104
  Receipt Date: 20211104
  Transmission Date: 20220303
  Serious: Yes (Hospitalization, Disabling, Other)
  Sender: FDA-Public Use
  Company Number: US-GILEAD-2021-0554805

PATIENT
  Age: 38 Year
  Sex: Male

DRUGS (1)
  1. EFAVIRENZ\EMTRICITABINE\TENOFOVIR DISOPROXIL FUMARATE [Suspect]
     Active Substance: EFAVIRENZ\EMTRICITABINE\TENOFOVIR DISOPROXIL FUMARATE
     Indication: HIV infection
     Dosage: UNK
     Route: 065
     Dates: end: 20140101

REACTIONS (12)
  - Cardiac failure [Unknown]
  - Intracardiac thrombus [Unknown]
  - Tuberculosis [Unknown]
  - Back pain [Unknown]
  - Fatigue [Unknown]
  - Dyspnoea exertional [Unknown]
  - Asthenia [Unknown]
  - Stress [Unknown]
  - Weight decreased [Unknown]
  - Fluid retention [Unknown]
  - Hyperhidrosis [Unknown]
  - Depression [Unknown]

NARRATIVE: CASE EVENT DATE: 20110201
